FAERS Safety Report 8312904-8 (Version None)
Quarter: 2012Q2

REPORT INFORMATION
  Report Type: 
  Country: None (occurrence: None)
  Receive Date: 20120424
  Receipt Date: 20120411
  Transmission Date: 20120825
  Serious: Yes (Other)
  Sender: FDA-Public Use
  Company Number: USA/GER/12/0023894

PATIENT
  Sex: Female

DRUGS (2)
  1. LAMOTRIGINE [Suspect]
     Indication: EPILEPSY
     Dosage: 1 GM, 1 D, UNKNOWN
  2. LEVETIRACETAM [Suspect]
     Indication: EPILEPSY
     Dosage: 2 GM, 1 D,

REACTIONS (3)
  - ANTICONVULSANT DRUG LEVEL INCREASED [None]
  - MATERNAL EXPOSURE DURING PREGNANCY [None]
  - GRAND MAL CONVULSION [None]
